FAERS Safety Report 9529956 (Version 2)
Quarter: 2014Q2

REPORT INFORMATION
  Report Type: Report from Study
  Country: US (occurrence: US)
  Receive Date: 20130917
  Receipt Date: 20140417
  Transmission Date: 20141212
  Serious: Yes (Death, Hospitalization)
  Sender: FDA-Public Use
  Company Number: US-ROCHE-1274685

PATIENT
  Age: 57 Year
  Sex: Male
  Weight: 66 kg

DRUGS (7)
  1. RIBAVIRIN [Suspect]
     Indication: HEPATITIS C
     Route: 048
     Dates: start: 20130724, end: 20130821
  2. SOFOSBUVIR [Suspect]
     Indication: HEPATITIS C
     Route: 048
     Dates: start: 20130724, end: 20130821
  3. PEG-INTERFERON ALFA 2A [Suspect]
     Indication: HEPATITIS C
     Route: 058
     Dates: start: 20130724, end: 20130814
  4. PROGRAF [Concomitant]
     Route: 065
     Dates: start: 20120218
  5. METFORMIN [Concomitant]
     Route: 065
     Dates: start: 20120306
  6. ASA [Concomitant]
     Route: 065
     Dates: start: 20120306
  7. EFFEXOR [Concomitant]
     Route: 065
     Dates: start: 201109

REACTIONS (1)
  - Renal failure acute [Fatal]
